FAERS Safety Report 18781183 (Version 1)
Quarter: 2021Q1

REPORT INFORMATION
  Report Type: Spontaneous
  Country: US (occurrence: US)
  Receive Date: 20210124
  Receipt Date: 20210124
  Transmission Date: 20210419
  Serious: No
  Sender: FDA-Public Use
  Company Number: None

PATIENT
  Age: 76 Year
  Sex: Female
  Weight: 58.5 kg

DRUGS (2)
  1. XIIDRA [Suspect]
     Active Substance: LIFITEGRAST
     Indication: DRY EYE
     Route: 047
     Dates: start: 20201221, end: 20201231
  2. LOTEPREDNOL [Suspect]
     Active Substance: LOTEPREDNOL

REACTIONS (4)
  - Ear pain [None]
  - Eye pain [None]
  - Eye swelling [None]
  - Ear discomfort [None]

NARRATIVE: CASE EVENT DATE: 20201230
